FAERS Safety Report 25134972 (Version 1)
Quarter: 2025Q1

REPORT INFORMATION
  Report Type: Spontaneous
  Country: US (occurrence: US)
  Receive Date: 20250328
  Receipt Date: 20250328
  Transmission Date: 20250409
  Serious: No
  Sender: AMGEN
  Company Number: US-PFIZER INC-202500065640

PATIENT
  Age: 68 Year
  Sex: Female

DRUGS (1)
  1. ETANERCEPT [Suspect]
     Active Substance: ETANERCEPT
     Indication: Product used for unknown indication
     Route: 065

REACTIONS (2)
  - Therapeutic product effect incomplete [Unknown]
  - Drug intolerance [Unknown]
